FAERS Safety Report 24620911 (Version 1)
Quarter: 2024Q4

REPORT INFORMATION
  Report Type: Spontaneous
  Country: IT (occurrence: IT)
  Receive Date: 20241114
  Receipt Date: 20241114
  Transmission Date: 20250114
  Serious: Yes (Other)
  Sender: AUROBINDO
  Company Number: IT-MINISAL02-1008966

PATIENT
  Age: 81 Year
  Sex: Female

DRUGS (2)
  1. LETROZOLE [Suspect]
     Active Substance: LETROZOLE
     Indication: Product used for unknown indication
     Dosage: 2.5 MILLIGRAM, ONCE A DAY (2.5 MG/DAY)
     Route: 048
  2. IBRANCE [Suspect]
     Active Substance: PALBOCICLIB
     Indication: Product used for unknown indication
     Dosage: 100 MILLIGRAM (100MG/DAY FOR 21 DAYS THEN SUSPENSION FOR 7 DAYS)
     Route: 048

REACTIONS (1)
  - Neutropenia [Recovered/Resolved]
